FAERS Safety Report 16758752 (Version 1)
Quarter: 2019Q3

REPORT INFORMATION
  Report Type: Spontaneous
  Country: DE (occurrence: DE)
  Receive Date: 20190830
  Receipt Date: 20190830
  Transmission Date: 20191005
  Serious: Yes (Other)
  Sender: FDA-Public Use
  Company Number: DE-ALKEM LABORATORIES LIMITED-DE-ALKEM-2017-02264

PATIENT
  Age: 46 Year
  Sex: Female

DRUGS (18)
  1. PIPAMPERONE [Suspect]
     Active Substance: PIPAMPERONE
     Dosage: 120 MG, OD
     Route: 048
     Dates: start: 20140809, end: 20140904
  2. METOPROLOL. [Concomitant]
     Active Substance: METOPROLOL
     Indication: PRODUCT USED FOR UNKNOWN INDICATION
     Dosage: 47.5 MG, OD
     Route: 048
     Dates: start: 20130905, end: 20141015
  3. LEVOMEPROMAZINE [Suspect]
     Active Substance: LEVOMEPROMAZINE
     Dosage: 50 MG, OD
     Route: 048
     Dates: start: 20140806, end: 20140925
  4. METOPROLOL. [Concomitant]
     Active Substance: METOPROLOL
     Dosage: 95 MG, OD
     Route: 048
     Dates: start: 20141016, end: 20160119
  5. SERTRALINE [Suspect]
     Active Substance: SERTRALINE HYDROCHLORIDE
     Indication: PRODUCT USED FOR UNKNOWN INDICATION
     Dosage: 100 MG, OD
     Route: 048
     Dates: start: 20140610, end: 20140904
  6. LEVOMEPROMAZINE [Suspect]
     Active Substance: LEVOMEPROMAZINE
     Indication: PRODUCT USED FOR UNKNOWN INDICATION
     Dosage: 100 MG, OD
     Route: 048
     Dates: start: 20140503, end: 20140805
  7. RAMIPRIL. [Concomitant]
     Active Substance: RAMIPRIL
     Dosage: 10 MG, UNK
     Route: 048
     Dates: start: 20131219
  8. QUETIAPINE FUMARATE. [Suspect]
     Active Substance: QUETIAPINE FUMARATE
     Indication: PRODUCT USED FOR UNKNOWN INDICATION
     Dosage: 500 MG, OD
     Route: 048
     Dates: start: 20100515, end: 20130110
  9. QUETIAPINE FUMARATE. [Suspect]
     Active Substance: QUETIAPINE FUMARATE
     Dosage: 500 MG, OD
     Route: 048
     Dates: start: 20130701, end: 20140521
  10. QUETIAPINE FUMARATE. [Suspect]
     Active Substance: QUETIAPINE FUMARATE
     Dosage: 800 MG, OD
     Route: 048
     Dates: start: 20140522, end: 20140928
  11. AMISULPRIDE [Suspect]
     Active Substance: AMISULPRIDE
     Dosage: 600 MG, OD
     Route: 048
     Dates: start: 20140613, end: 20140820
  12. AMISULPRIDE [Suspect]
     Active Substance: AMISULPRIDE
     Indication: PRODUCT USED FOR UNKNOWN INDICATION
     Dosage: 800 MG, OD
     Route: 048
     Dates: start: 20140504, end: 20140612
  13. AMISULPRIDE [Suspect]
     Active Substance: AMISULPRIDE
     Dosage: 400 MG, OD
     Route: 048
     Dates: start: 20140821, end: 20150514
  14. PIPAMPERONE [Suspect]
     Active Substance: PIPAMPERONE
     Dosage: 80 MG, OD
     Route: 048
     Dates: start: 20140905, end: 20141015
  15. RAMIPRIL. [Concomitant]
     Active Substance: RAMIPRIL
     Indication: PRODUCT USED FOR UNKNOWN INDICATION
     Dosage: 5 UNK, OD
     Route: 048
     Dates: start: 20121220, end: 20131218
  16. QUETIAPINE FUMARATE. [Suspect]
     Active Substance: QUETIAPINE FUMARATE
     Dosage: 600 MG, OD
     Route: 048
     Dates: start: 20130111, end: 20130130
  17. PIPAMPERONE [Suspect]
     Active Substance: PIPAMPERONE
     Indication: PRODUCT USED FOR UNKNOWN INDICATION
     Dosage: 80 MG, OD
     Route: 048
     Dates: start: 20140428, end: 20140808
  18. METOPROLOL. [Concomitant]
     Active Substance: METOPROLOL
     Dosage: 47.5 MG, OD
     Dates: start: 20160120

REACTIONS (2)
  - Weight increased [Unknown]
  - Cardiometabolic syndrome [Unknown]

NARRATIVE: CASE EVENT DATE: 20140701
